FAERS Safety Report 4968483-6 (Version None)
Quarter: 2006Q2

REPORT INFORMATION
  Report Type: 
  Country: None (occurrence: None)
  Receive Date: 20060410
  Receipt Date: 20050824
  Transmission Date: 20061013
  Serious: Yes (Hospitalization)
  Sender: FDA-Public Use
  Company Number: US-MERCK-0508USA04051

PATIENT
  Age: 67 Year
  Sex: Male
  Weight: 82 kg

DRUGS (1)
  1. VIOXX [Suspect]
     Indication: BURSITIS
     Route: 048
     Dates: start: 20010404, end: 20040810

REACTIONS (5)
  - ACUTE MYOCARDIAL INFARCTION [None]
  - ANHEDONIA [None]
  - BRONCHITIS [None]
  - PAIN [None]
  - POLYTRAUMATISM [None]
